FAERS Safety Report 8829307 (Version 1)
Quarter: 2012Q4

REPORT INFORMATION
  Report Type: Spontaneous
  Country: US (occurrence: None)
  Receive Date: 20121005
  Receipt Date: 20121005
  Transmission Date: 20130627
  Serious: Yes (Other)
  Sender: FDA-Public Use
  Company Number: None

PATIENT
  Sex: Male
  Weight: 86.18 kg

DRUGS (1)
  1. CYMBALTA [Suspect]
     Dosage: 30 mg once a day oral
     Route: 048
     Dates: start: 20120520, end: 20120906

REACTIONS (11)
  - Emotional disorder [None]
  - Cold sweat [None]
  - Tremor [None]
  - Agitation [None]
  - Irritability [None]
  - Hiccups [None]
  - Insomnia [None]
  - Abdominal pain upper [None]
  - Nausea [None]
  - Vomiting [None]
  - Decreased appetite [None]
